FAERS Safety Report 21623893 (Version 2)
Quarter: 2023Q1

REPORT INFORMATION
  Report Type: Report from Study
  Country: IL (occurrence: IL)
  Receive Date: 20221121
  Receipt Date: 20230105
  Transmission Date: 20230418
  Serious: No
  Sender: FDA-Public Use
  Company Number: IL-KARYOPHARM-2022KPT001379

PATIENT
  Sex: Male

DRUGS (3)
  1. SELINEXOR [Suspect]
     Active Substance: SELINEXOR
     Indication: Plasma cell myeloma
     Dosage: 60 MG
     Route: 048
     Dates: end: 202212
  2. DEXAMETHASONE [Concomitant]
     Active Substance: DEXAMETHASONE
  3. KYPROLIS [Concomitant]
     Active Substance: CARFILZOMIB

REACTIONS (1)
  - Plasma cell myeloma [Unknown]

NARRATIVE: CASE EVENT DATE: 20220101
